FAERS Safety Report 9011403 (Version 1)
Quarter: 2013Q1

REPORT INFORMATION
  Report Type: Spontaneous
  Country: US (occurrence: US)
  Receive Date: 20130108
  Receipt Date: 20130108
  Transmission Date: 20140127
  Serious: No
  Sender: FDA-Public Use
  Company Number: US-PFIZER INC-2013005117

PATIENT
  Age: 10 Year
  Sex: Female
  Weight: 27 kg

DRUGS (1)
  1. JUNIOR STRENGTH ADVIL [Suspect]
     Indication: PYREXIA
     Dosage: 2 CHEWABLES AT ONCE
     Route: 048
     Dates: start: 20130104

REACTIONS (2)
  - Swelling face [Not Recovered/Not Resolved]
  - Eye swelling [Not Recovered/Not Resolved]
